FAERS Safety Report 8437998-0 (Version None)
Quarter: 2012Q2

REPORT INFORMATION
  Report Type: 
  Country: None (occurrence: None)
  Receive Date: 20120614
  Receipt Date: 20120601
  Transmission Date: 20120825
  Serious: No
  Sender: FDA-Public Use
  Company Number: US-AMGEN-USASP2012027995

PATIENT
  Age: 47 Year
  Sex: Female

DRUGS (5)
  1. XGEVA [Suspect]
     Indication: MANIPULATION
     Dosage: UNK
  2. MOTRIN [Concomitant]
  3. PRISTIQ [Concomitant]
  4. SYNTHROID [Concomitant]
  5. NEXIUM [Concomitant]

REACTIONS (5)
  - DYSGEUSIA [None]
  - BLOOD PRESSURE INCREASED [None]
  - HEADACHE [None]
  - FEELING ABNORMAL [None]
  - TREMOR [None]
